FAERS Safety Report 15853944 (Version 1)
Quarter: 2019Q1

REPORT INFORMATION
  Report Type: Spontaneous
  Country: US (occurrence: US)
  Receive Date: 20190121
  Receipt Date: 20190121
  Transmission Date: 20190417
  Serious: No
  Sender: FDA-Public Use
  Company Number: None

PATIENT
  Age: 57 Year
  Sex: Male
  Weight: 98.1 kg

DRUGS (15)
  1. L-ARGININE [Concomitant]
     Active Substance: ARGININE
  2. GLUCOSAMINE CHONDRITIN MSM [Concomitant]
  3. FINASTERIDE. [Suspect]
     Active Substance: FINASTERIDE
     Indication: BENIGN PROSTATIC HYPERPLASIA
     Dosage: ?          QUANTITY:1 TABLET(S);?
     Route: 048
     Dates: start: 20180918, end: 20190117
  4. HYDRALAZINE [Concomitant]
     Active Substance: HYDRALAZINE HYDROCHLORIDE
  5. ROSUVASTATIN. [Concomitant]
     Active Substance: ROSUVASTATIN
  6. ASPIRIN. [Concomitant]
     Active Substance: ASPIRIN
  7. TUMERIC [Concomitant]
     Active Substance: HERBALS\TURMERIC
  8. ACIDOPHILUS PROBIOTIC [Concomitant]
  9. CARVEDILOL. [Concomitant]
     Active Substance: CARVEDILOL
  10. TADALAFIL. [Concomitant]
     Active Substance: TADALAFIL
  11. SAW PALMETTO [Concomitant]
     Active Substance: HERBALS\SAW PALMETTO
  12. CHLORTHALIDONE. [Concomitant]
     Active Substance: CHLORTHALIDONE
  13. OMEGA 3 [Concomitant]
     Active Substance: OMEGA-3 FATTY ACIDS
  14. LISINOPRIL. [Concomitant]
     Active Substance: LISINOPRIL
  15. VITAMIN D3 [Concomitant]
     Active Substance: CHOLECALCIFEROL

REACTIONS (1)
  - Ejaculation failure [None]
